FAERS Safety Report 6300064-4 (Version None)
Quarter: 2009Q3

REPORT INFORMATION
  Report Type: 
  Country: None (occurrence: None)
  Receive Date: 20090803
  Receipt Date: 20090720
  Transmission Date: 20100115
  Serious: Yes (Other)
  Sender: FDA-Public Use
  Company Number: ADR10682009

PATIENT
  Age: 45 Year
  Sex: Male

DRUGS (4)
  1. AMLODIPINE [Suspect]
  2. ASPIRIN [Concomitant]
  3. AVANDAMET [Concomitant]
  4. METOPROLOL [Concomitant]

REACTIONS (3)
  - BLOOD CHOLESTEROL ABNORMAL [None]
  - DIABETES MELLITUS INADEQUATE CONTROL [None]
  - DRUG INEFFECTIVE [None]
